FAERS Safety Report 4775054-3 (Version None)
Quarter: 2005Q3

REPORT INFORMATION
  Report Type: 
  Country: None (occurrence: None)
  Receive Date: 20050921
  Receipt Date: 20050906
  Transmission Date: 20060218
  Serious: Yes (Hospitalization)
  Sender: FDA-Public Use
  Company Number: SEWYE958707SEP05

PATIENT
  Sex: Male

DRUGS (3)
  1. ENBREL [Suspect]
     Indication: RHEUMATOID ARTHRITIS
     Dosage: DOSE REGIMEN WAS NOT SPECIFIED
     Route: 058
     Dates: start: 20040401
  2. SANDIMMUNE [Suspect]
  3. MEDROL [Concomitant]
     Dates: start: 20050101

REACTIONS (6)
  - CONFUSIONAL STATE [None]
  - DIFFICULTY IN WALKING [None]
  - HEADACHE [None]
  - NERVOUS SYSTEM DISORDER [None]
  - SPEECH DISORDER [None]
  - VASCULITIS CEREBRAL [None]
